FAERS Safety Report 8948370 (Version 1)
Quarter: 2012Q4

REPORT INFORMATION
  Report Type: 
  Country: US (occurrence: US)
  Receive Date: 20121206
  Receipt Date: 20121206
  Transmission Date: 20130627
  Serious: Yes (Death)
  Sender: FDA-Public Use
  Company Number: PHEH2012US023814

PATIENT
  Sex: Female

DRUGS (8)
  1. GLEEVEC [Suspect]
     Dosage: 100 mg, QD
  2. AMITRIPTYLENE [Concomitant]
     Dosage: 10 mg, UNK
  3. TEMAZEPAM [Concomitant]
     Dosage: 15 mg, UNK
  4. ASA [Concomitant]
     Dosage: 81 mg, UNK
  5. ALLOPURINOL [Concomitant]
     Dosage: 100 mg, UNK
  6. OMEPRAZOL ^ACYFABRIK^ [Concomitant]
     Dosage: 40 mg, UNK
  7. LESCOL [Concomitant]
     Dosage: 20 mg, UNK
  8. WOMENS BONE TABLET [Concomitant]

REACTIONS (1)
  - Death [Fatal]
